FAERS Safety Report 9432536 (Version 1)
Quarter: 2013Q3

REPORT INFORMATION
  Report Type: Spontaneous
  Country: JP (occurrence: JP)
  Receive Date: 20130731
  Receipt Date: 20130731
  Transmission Date: 20140515
  Serious: Yes (Other)
  Sender: FDA-Public Use
  Company Number: PHHY2013JP081188

PATIENT
  Sex: Male

DRUGS (3)
  1. DIOVAN [Suspect]
     Indication: HYPERTENSION
     Dosage: 80 MG, DAILY
     Route: 048
  2. DIOVAN [Suspect]
     Dosage: 80 MG, DAILY
     Route: 048
  3. CARVEDILOL [Concomitant]
     Indication: HYPERTENSION
     Route: 048

REACTIONS (8)
  - Blood pressure decreased [Unknown]
  - Dizziness [Unknown]
  - Loss of consciousness [Unknown]
  - Extraocular muscle paresis [Unknown]
  - Vision blurred [Unknown]
  - Fall [Unknown]
  - Head injury [Unknown]
  - Thinking abnormal [Unknown]
